FAERS Safety Report 17180072 (Version 1)
Quarter: 2019Q4

REPORT INFORMATION
  Report Type: Spontaneous
  Country: DE (occurrence: DE)
  Receive Date: 20191220
  Receipt Date: 20191220
  Transmission Date: 20200122
  Serious: Yes (Other)
  Sender: FDA-Public Use
  Company Number: DE-SUN PHARMACEUTICAL INDUSTRIES LTD-2019RR-231354

PATIENT
  Age: 44 Year
  Sex: Male
  Weight: 85 kg

DRUGS (1)
  1. SERTRALINE [Suspect]
     Active Substance: SERTRALINE HYDROCHLORIDE
     Indication: DEPRESSION
     Dosage: UNK
     Route: 048

REACTIONS (2)
  - Memory impairment [Unknown]
  - Suicidal ideation [Not Recovered/Not Resolved]
